APPROVED DRUG PRODUCT: PROGRAF
Active Ingredient: TACROLIMUS
Strength: EQ 0.5MG BASE
Dosage Form/Route: CAPSULE;ORAL
Application: N050708 | Product #003 | TE Code: AB
Applicant: ASTELLAS PHARMA US INC
Approved: Aug 24, 1998 | RLD: Yes | RS: No | Type: RX

EXCLUSIVITY:
Code: ODE-360 | Date: Jul 16, 2028